FAERS Safety Report 9436351 (Version 1)
Quarter: 2013Q3

REPORT INFORMATION
  Report Type: Spontaneous
  Country: US (occurrence: US)
  Receive Date: 20130802
  Receipt Date: 20130802
  Transmission Date: 20140515
  Serious: No
  Sender: FDA-Public Use
  Company Number: US-BIOGENIDEC-2013BI070791

PATIENT
  Age: 58 Year
  Sex: Female

DRUGS (1)
  1. AVONEX [Suspect]
     Indication: MULTIPLE SCLEROSIS
     Route: 030
     Dates: start: 20130720

REACTIONS (7)
  - Injection site pruritus [Unknown]
  - Swollen tongue [Unknown]
  - Injection site induration [Unknown]
  - Injection site erythema [Unknown]
  - Pruritus generalised [Unknown]
  - Chills [Unknown]
  - Dyspnoea [Unknown]
